FAERS Safety Report 18880885 (Version 1)
Quarter: 2021Q1

REPORT INFORMATION
  Report Type: Spontaneous
  Country: US (occurrence: US)
  Receive Date: 20210212
  Receipt Date: 20210212
  Transmission Date: 20210420
  Serious: Yes (Other)
  Sender: FDA-Public Use
  Company Number: US-ABBVIE-21K-163-3769819-00

PATIENT
  Age: 44 Year
  Sex: Female

DRUGS (1)
  1. LUPRON DEPOT [Suspect]
     Active Substance: LEUPROLIDE ACETATE
     Indication: PRODUCT USED FOR UNKNOWN INDICATION
     Route: 030

REACTIONS (5)
  - Needle issue [Recovered/Resolved]
  - Device issue [Recovered/Resolved]
  - Haemorrhage [Unknown]
  - Chemotherapy [Unknown]
  - Leukaemia [Unknown]

NARRATIVE: CASE EVENT DATE: 20210122
